FAERS Safety Report 15698064 (Version 1)
Quarter: 2018Q4

REPORT INFORMATION
  Report Type: Spontaneous
  Country: CA (occurrence: CA)
  Receive Date: 20181207
  Receipt Date: 20181207
  Transmission Date: 20190205
  Serious: Yes (Hospitalization)
  Sender: FDA-Public Use
  Company Number: CA-TEVA-2018-CA-984730

PATIENT
  Age: 1 Month
  Sex: Female

DRUGS (6)
  1. LORAZEPAM. [Suspect]
     Active Substance: LORAZEPAM
     Indication: CONVULSION NEONATAL
     Route: 042
  2. ALDACTAZIDE [Concomitant]
     Active Substance: HYDROCHLOROTHIAZIDE\SPIRONOLACTONE
     Indication: BRONCHOPULMONARY DYSPLASIA
     Dosage: 3.8 MILLIGRAM DAILY;
     Route: 048
  3. CEFOTAXIME [Concomitant]
     Active Substance: CEFOTAXIME SODIUM
     Indication: MENINGITIS BACTERIAL
     Route: 042
  4. CAFFEINE. [Concomitant]
     Active Substance: CAFFEINE
     Indication: INFANTILE APNOEA
     Dosage: 6.35 MILLIGRAM DAILY;
     Route: 042
  5. FLUCONAZOLE. [Concomitant]
     Active Substance: FLUCONAZOLE
     Indication: FUNGAL INFECTION
     Dosage: 15 MILLIGRAM DAILY;
     Route: 048
  6. PHENOBARBITAL. [Suspect]
     Active Substance: PHENOBARBITAL
     Indication: CONVULSION NEONATAL
     Route: 042

REACTIONS (2)
  - Product use issue [Recovered/Resolved]
  - Drug ineffective for unapproved indication [Recovered/Resolved]
